FAERS Safety Report 15640775 (Version 2)
Quarter: 2018Q4

REPORT INFORMATION
  Report Type: Spontaneous
  Country: US (occurrence: US)
  Receive Date: 20181120
  Receipt Date: 20181217
  Transmission Date: 20190205
  Serious: Yes (Other)
  Sender: FDA-Public Use
  Company Number: US-ASTRAZENECA-2018SF50098

PATIENT
  Age: 73 Year
  Sex: Male
  Weight: 111.1 kg

DRUGS (6)
  1. FINASTERIDE. [Concomitant]
     Active Substance: FINASTERIDE
     Indication: RENAL DISORDER
     Route: 048
  2. EZETIMIBE SIMVASTATIN [Concomitant]
     Active Substance: EZETIMIBE\SIMVASTATIN
     Dosage: 10/20 MG, DAILY
     Route: 048
  3. BYDUREON [Suspect]
     Active Substance: EXENATIDE
     Indication: TYPE 2 DIABETES MELLITUS
     Route: 058
     Dates: start: 2017
  4. TAMSULOSIN [Concomitant]
     Active Substance: TAMSULOSIN
     Indication: RENAL DISORDER
     Route: 048
  5. LISINOPRIL HCTZ [Suspect]
     Active Substance: HYDROCHLOROTHIAZIDE\LISINOPRIL
     Indication: BLOOD PRESSURE ABNORMAL
     Dosage: 20/12.5 MG, 2 DF DAILY
     Route: 048
  6. ASPIRIN. [Concomitant]
     Active Substance: ASPIRIN
     Route: 048

REACTIONS (6)
  - Device leakage [Unknown]
  - Device malfunction [Unknown]
  - Circumstance or information capable of leading to medication error [Unknown]
  - Optic nerve disorder [Unknown]
  - Visual acuity reduced [Unknown]
  - Basal cell carcinoma [Unknown]

NARRATIVE: CASE EVENT DATE: 2017
